FAERS Safety Report 5508293-4 (Version None)
Quarter: 2007Q4

REPORT INFORMATION
  Report Type: 
  Country: None (occurrence: None)
  Receive Date: 20071106
  Receipt Date: 20071016
  Transmission Date: 20080405
  Serious: No
  Sender: FDA-Public Use
  Company Number: US-BOEHRINGER INGELHEIM PHARMACEUTICALS, INC.-2007-BP-19608BP

PATIENT
  Sex: Female

DRUGS (11)
  1. SPIRIVA [Suspect]
     Indication: CHRONIC OBSTRUCTIVE PULMONARY DISEASE
     Route: 055
     Dates: start: 20041201, end: 20070810
  2. SPIRIVA [Suspect]
     Indication: EMPHYSEMA
  3. OXYGEN [Concomitant]
  4. AVAPRO [Concomitant]
  5. TOPROL-XL [Concomitant]
  6. FUROSEMIDE [Concomitant]
  7. MYSOLINE [Concomitant]
  8. SINGULAIR [Concomitant]
  9. PULMICORT [Concomitant]
  10. WARFARIN SODIUM [Concomitant]
  11. AMLODIPINE [Concomitant]

REACTIONS (2)
  - DRY MOUTH [None]
  - VISION BLURRED [None]
